FAERS Safety Report 14331289 (Version 1)
Quarter: 2017Q4

REPORT INFORMATION
  Report Type: Spontaneous
  Country: PK (occurrence: PK)
  Receive Date: 20171228
  Receipt Date: 20171228
  Transmission Date: 20180321
  Serious: Yes (Other)
  Sender: FDA-Public Use
  Company Number: PK-PHARMACEUTICS INTERNATIONAL, INC. (PII)-2017PII000009

PATIENT

DRUGS (2)
  1. POTASSIUM CHLORIDE USP [Suspect]
     Active Substance: POTASSIUM CHLORIDE
     Indication: HYPOKALAEMIA
     Dosage: UNK (INTRAVENOUS ROUTE)
     Route: 042
  2. POTASSIUM CHLORIDE USP [Suspect]
     Active Substance: POTASSIUM CHLORIDE
     Dosage: UNK (ENTERAL ROUTE)
     Route: 050

REACTIONS (1)
  - Arrhythmia supraventricular [Recovering/Resolving]
